FAERS Safety Report 7071318-1 (Version None)
Quarter: 2010Q4

REPORT INFORMATION
  Report Type: 
  Country: None (occurrence: None)
  Receive Date: 20101029
  Receipt Date: 20101025
  Transmission Date: 20110411
  Serious: Yes (Other)
  Sender: FDA-Public Use
  Company Number: KR-BAYER-201043319GPV

PATIENT
  Age: 38 Year
  Sex: Male

DRUGS (2)
  1. ASPIRIN [Suspect]
     Indication: DIABETES MELLITUS
     Route: 048
     Dates: end: 20101023
  2. ASPIRIN [Suspect]
     Route: 048
     Dates: start: 20101024, end: 20101024

REACTIONS (2)
  - OFF LABEL USE [None]
  - OVERDOSE [None]
